FAERS Safety Report 9563128 (Version 3)
Quarter: 2013Q4

REPORT INFORMATION
  Report Type: Spontaneous
  Country: JP (occurrence: JP)
  Receive Date: 20130927
  Receipt Date: 20131114
  Transmission Date: 20140711
  Serious: Yes (Other)
  Sender: FDA-Public Use
  Company Number: JP-KOWA-2013S1001784

PATIENT
  Age: 73 Year
  Sex: Female
  Weight: 49 kg

DRUGS (5)
  1. LIVALO [Suspect]
     Indication: HYPERCHOLESTEROLAEMIA
     Route: 048
     Dates: start: 20130815, end: 20130824
  2. BARNIDIPINE [Concomitant]
     Indication: HYPERTENSION
     Route: 048
  3. PARIET [Concomitant]
     Route: 048
     Dates: start: 20130708
  4. PREDNISOLONE [Concomitant]
     Indication: STEROID THERAPY
     Route: 048
     Dates: start: 20130709
  5. GASLON [Concomitant]
     Route: 048
     Dates: start: 20130716

REACTIONS (1)
  - Agranulocytosis [Recovered/Resolved]
